FAERS Safety Report 6207106-5 (Version None)
Quarter: 2009Q2

REPORT INFORMATION
  Report Type: 
  Country: None (occurrence: None)
  Receive Date: 20090528
  Receipt Date: 20090519
  Transmission Date: 20091009
  Serious: Yes (Hospitalization)
  Sender: FDA-Public Use
  Company Number: AT-ELI_LILLY_AND_COMPANY-AT200905003770

PATIENT
  Age: 9 Year
  Sex: Female

DRUGS (2)
  1. OLANZAPINE [Suspect]
     Indication: IMPULSE-CONTROL DISORDER
     Dosage: UNK, UNKNOWN
  2. OLANZAPINE [Suspect]
     Dosage: UNK, UNKNOWN
     Dates: start: 20090101

REACTIONS (4)
  - HOSPITALISATION [None]
  - INCREASED APPETITE [None]
  - SEDATION [None]
  - WEIGHT INCREASED [None]
